FAERS Safety Report 8247888-4 (Version None)
Quarter: 2012Q1

REPORT INFORMATION
  Report Type: 
  Country: None (occurrence: None)
  Receive Date: 20120330
  Receipt Date: 20120327
  Transmission Date: 20120608
  Serious: Yes (Hospitalization, Disabling, Other)
  Sender: FDA-Public Use
  Company Number: US-MERCK-1111USA02189

PATIENT
  Age: 53 Year
  Sex: Female
  Weight: 80 kg

DRUGS (11)
  1. FOSAMAX [Suspect]
     Indication: OSTEOPOROSIS PROPHYLAXIS
     Route: 048
     Dates: start: 20010101, end: 20100101
  2. FOSAMAX [Suspect]
     Route: 065
     Dates: start: 19980101
  3. FOSAMAX [Suspect]
     Route: 048
     Dates: start: 19950101, end: 20100101
  4. SYNTHROID [Concomitant]
     Route: 065
  5. FOSAMAX [Suspect]
     Route: 048
     Dates: start: 20070407, end: 20080425
  6. FOSAMAX [Suspect]
     Route: 065
     Dates: start: 19980101
  7. FOSAMAX [Suspect]
     Route: 048
     Dates: start: 20080418
  8. FOSAMAX [Suspect]
     Indication: OSTEOPOROSIS
     Route: 048
     Dates: start: 20010101, end: 20100101
  9. FOSAMAX [Suspect]
     Route: 048
     Dates: start: 20070407, end: 20080425
  10. FOSAMAX [Suspect]
     Route: 048
     Dates: start: 19950101, end: 20100101
  11. FOSAMAX [Suspect]
     Route: 048
     Dates: start: 20080418

REACTIONS (37)
  - TRIGGER FINGER [None]
  - FOOT DEFORMITY [None]
  - BURSITIS [None]
  - FALL [None]
  - ARTHRALGIA [None]
  - WEIGHT INCREASED [None]
  - PLANTAR FASCIITIS [None]
  - HAEMATOMA [None]
  - UPPER LIMB FRACTURE [None]
  - ANKLE FRACTURE [None]
  - ANXIETY [None]
  - MEDICAL DEVICE DISCOMFORT [None]
  - ILIOTIBIAL BAND SYNDROME [None]
  - THYROXINE FREE INCREASED [None]
  - PAIN IN EXTREMITY [None]
  - DYSPNOEA EXERTIONAL [None]
  - AORTIC ARTERIOSCLEROSIS [None]
  - BLOOD CHOLESTEROL INCREASED [None]
  - OSTEOARTHRITIS [None]
  - ARTHROPATHY [None]
  - TENDON DISORDER [None]
  - HYPOAESTHESIA [None]
  - DEPRESSION [None]
  - SYNOVIAL CYST [None]
  - MUSCLE SPASMS [None]
  - LIMB INJURY [None]
  - HYPERTENSION [None]
  - FEMUR FRACTURE [None]
  - LIGAMENT RUPTURE [None]
  - TOOTH DISORDER [None]
  - BLOOD THYROID STIMULATING HORMONE DECREASED [None]
  - OSTEOPOROSIS [None]
  - BONE FRAGMENTATION [None]
  - LEFT VENTRICULAR HYPERTROPHY [None]
  - TENDONITIS [None]
  - RIB FRACTURE [None]
  - DYSAESTHESIA [None]
